FAERS Safety Report 5133738-1 (Version None)
Quarter: 2006Q4

REPORT INFORMATION
  Report Type: 
  Country: None (occurrence: None)
  Receive Date: 20061024
  Receipt Date: 20061006
  Transmission Date: 20070319
  Serious: Yes (Death)
  Sender: FDA-Public Use
  Company Number: JP-AVENTIS-200613073JP

PATIENT
  Age: 70 Year
  Sex: Male
  Weight: 53.1 kg

DRUGS (2)
  1. TAXOTERE [Suspect]
     Indication: GASTRIC CANCER
     Route: 041
     Dates: start: 20060926, end: 20060926
  2. TS 1 [Concomitant]
     Indication: GASTRIC CANCER
     Route: 048
     Dates: start: 20051205, end: 20061002

REACTIONS (4)
  - DISSEMINATED INTRAVASCULAR COAGULATION [None]
  - MULTI-ORGAN FAILURE [None]
  - PANCYTOPENIA [None]
  - SEPTIC SHOCK [None]
